FAERS Safety Report 8368343-7 (Version None)
Quarter: 2012Q2

REPORT INFORMATION
  Report Type: 
  Country: None (occurrence: None)
  Receive Date: 20120517
  Receipt Date: 20120509
  Transmission Date: 20120825
  Serious: Yes (Death, Hospitalization, Other)
  Sender: FDA-Public Use
  Company Number: ES-ELI_LILLY_AND_COMPANY-ES201202000529

PATIENT
  Sex: Female
  Weight: 50 kg

DRUGS (14)
  1. GLYBURIDE [Concomitant]
     Indication: DIABETES MELLITUS
     Dosage: 1 DF, QD
     Route: 048
  2. ENALAPRIL MALEATE [Concomitant]
     Indication: HYPERTENSION
     Dosage: 1.5 DF, QD
     Route: 048
  3. RILAST [Concomitant]
     Indication: BRONCHIAL DISORDER
     Dosage: 1 DF, BID
     Route: 048
  4. LUMIGAN [Concomitant]
     Indication: GLAUCOMA
     Dosage: 1 DF, QD
  5. MASTICAL [Concomitant]
     Indication: OSTEOPOROSIS
     Dosage: 1 DF, QD
     Route: 048
  6. ACETAMINOPHEN [Concomitant]
     Indication: PAIN
     Dosage: UNK, PRN
     Route: 048
  7. VOLTAREN [Concomitant]
     Dosage: UNK, PRN
     Route: 048
  8. KILOR [Concomitant]
     Indication: ANAEMIA
     Dosage: 1 DF, QD
     Route: 048
  9. METFORMIN HCL [Concomitant]
     Indication: DIABETES MELLITUS
     Dosage: 1.5 DF, QD
     Route: 048
  10. TRAMADOL HYDROCHLORIDE [Concomitant]
     Indication: PAIN
     Dosage: UNK, PRN
     Route: 048
  11. FORTEO [Suspect]
     Indication: OSTEOPOROSIS
     Dosage: 20 UG, QD
     Route: 058
     Dates: start: 20110502
  12. FUROSEMIDA                         /00032601/ [Concomitant]
     Dosage: 1.5 DF, QD
     Route: 048
  13. ALBUTEROL [Concomitant]
     Indication: ASTHMA
     Dosage: UNK, PRN
     Route: 048
  14. DAFLON [Concomitant]
     Dosage: 1 DF, BID
     Route: 048

REACTIONS (6)
  - ANAEMIA [None]
  - GENERAL PHYSICAL HEALTH DETERIORATION [None]
  - DEATH [None]
  - HYPERKALAEMIA [None]
  - DIABETES MELLITUS [None]
  - PNEUMONIA [None]
